FAERS Safety Report 13807854 (Version 1)
Quarter: 2017Q3

REPORT INFORMATION
  Report Type: Spontaneous
  Country: US (occurrence: US)
  Receive Date: 20170728
  Receipt Date: 20170728
  Transmission Date: 20171127
  Serious: No
  Sender: FDA-Public Use
  Company Number: US-AKRIMAX-TIR-2017-0497

PATIENT
  Sex: Female
  Weight: 75.48 kg

DRUGS (10)
  1. LEVOTHYROXINE SODIUM. [Concomitant]
     Active Substance: LEVOTHYROXINE SODIUM
     Indication: PRODUCT USED FOR UNKNOWN INDICATION
     Dosage: ONE 75MCG TABLET ONCE DAILY
     Route: 048
  2. VITAMIN C [Concomitant]
     Active Substance: ASCORBIC ACID
     Indication: PRODUCT USED FOR UNKNOWN INDICATION
     Dosage: ONE 500MG CAPSULE ONCE DAILY
     Route: 048
  3. GENOTROPIN [Concomitant]
     Active Substance: SOMATROPIN
     Indication: PRODUCT USED FOR UNKNOWN INDICATION
     Dosage: ONE 0.4MG INJECTION ONCE DAILY
     Route: 058
  4. L CARNITINE [Concomitant]
     Active Substance: LEVOCARNITINE
     Indication: PRODUCT USED FOR UNKNOWN INDICATION
     Dosage: ONE 500MG TABLET ONCE DAILY
     Route: 048
  5. TIROSINT [Suspect]
     Active Substance: LEVOTHYROXINE SODIUM
     Indication: PRODUCT USED FOR UNKNOWN INDICATION
     Dosage: ONE 75MCG CAPSULE DAILY
     Route: 048
  6. HYDROCORTISONE. [Concomitant]
     Active Substance: HYDROCORTISONE
     Indication: PRODUCT USED FOR UNKNOWN INDICATION
     Dosage: ONE 10MG TABLET ONCE EVERY MORNING
     Route: 048
  7. VITAMIN D3 [Concomitant]
     Active Substance: CHOLECALCIFEROL
     Indication: PRODUCT USED FOR UNKNOWN INDICATION
     Dosage: ONE 5000 UNIT CAPSULE ONCE DAILY
     Route: 048
  8. VITAMIN B12 [Concomitant]
     Active Substance: CYANOCOBALAMIN
     Indication: PRODUCT USED FOR UNKNOWN INDICATION
     Dosage: ONE 100MCG TABLET ONCE DAILY
     Route: 048
  9. HYDROCORTISONE. [Concomitant]
     Active Substance: HYDROCORTISONE
     Dosage: ONE 5MG TABLET EVERY MORNING
     Route: 048
  10. TIROSINT [Suspect]
     Active Substance: LEVOTHYROXINE SODIUM
     Indication: PRODUCT USED FOR UNKNOWN INDICATION
     Dosage: ONE 88MCG CAPSULE DAILY
     Route: 048

REACTIONS (9)
  - Hypothalamo-pituitary disorder [Unknown]
  - Thyroid function test abnormal [Unknown]
  - Hypothyroidism [Unknown]
  - Fatigue [Unknown]
  - Asthenia [Unknown]
  - Oligomenorrhoea [Unknown]
  - Growth hormone deficiency [Unknown]
  - Orthostatic hypotension [Unknown]
  - Amnesia [Unknown]
